FAERS Safety Report 8396759 (Version 5)
Quarter: 2013Q2

REPORT INFORMATION
  Report Type: Report from Study
  Country: DE (occurrence: DE)
  Receive Date: 20120208
  Receipt Date: 20130614
  Transmission Date: 20140414
  Serious: Yes (Death, Hospitalization)
  Sender: FDA-Public Use
  Company Number: DE-BRISTOL-MYERS SQUIBB COMPANY-16373847

PATIENT
  Age: 46 Year
  Sex: Male
  Weight: 88.5 kg

DRUGS (1)
  1. IPILIMUMAB [Suspect]
     Indication: MALIGNANT MELANOMA
     Route: 042
     Dates: start: 20111228, end: 20120118

REACTIONS (3)
  - Malignant neoplasm progression [Fatal]
  - Epistaxis [Recovered/Resolved]
  - General physical health deterioration [Not Recovered/Not Resolved]
